FAERS Safety Report 8602891-7 (Version None)
Quarter: 2012Q3

REPORT INFORMATION
  Report Type: 
  Country: None (occurrence: None)
  Receive Date: 20120817
  Receipt Date: 20120809
  Transmission Date: 20120928
  Serious: Yes (Hospitalization, Congenital Anomaly)
  Sender: FDA-Public Use
  Company Number: US-GLAXOSMITHKLINE-A0989916A

PATIENT
  Sex: Male

DRUGS (2)
  1. PHENERGAN HCL [Concomitant]
     Indication: HYPEREMESIS GRAVIDARUM
     Route: 064
     Dates: start: 19960118
  2. PAXIL [Suspect]
     Indication: PRODUCT USED FOR UNKNOWN INDICATION
     Route: 064

REACTIONS (2)
  - FOETAL EXPOSURE DURING PREGNANCY [None]
  - ATRIAL SEPTAL DEFECT [None]
